FAERS Safety Report 22271467 (Version 1)
Quarter: 2023Q2

REPORT INFORMATION
  Report Type: Spontaneous
  Country: NL (occurrence: NL)
  Receive Date: 20230501
  Receipt Date: 20230501
  Transmission Date: 20230722
  Serious: Yes (Hospitalization, Other)
  Sender: FDA-Public Use
  Company Number: NL-STRIDES ARCOLAB LIMITED-2023SP006325

PATIENT
  Age: 71 Year
  Sex: Female

DRUGS (4)
  1. OLANZAPINE [Suspect]
     Active Substance: OLANZAPINE
     Indication: Bipolar I disorder
     Dosage: 10 MILLIGRAM
     Route: 065
  2. VALPROIC ACID [Suspect]
     Active Substance: VALPROIC ACID
     Indication: Bipolar I disorder
     Dosage: UNK (RECEIVING EFFECTIVE TREATMENT AT TROUGH LEVEL OF 50-80 MG/L FROM 16 YEARS)
     Route: 065
  3. VALPROIC ACID [Suspect]
     Active Substance: VALPROIC ACID
     Dosage: UNK (INCREASED DOSE TO ACHIEVE TROUGH LEVEL OF 80-100 MG/L)
     Route: 065
  4. LITHIUM [Suspect]
     Active Substance: LITHIUM
     Indication: Bipolar I disorder
     Dosage: UNK
     Route: 065

REACTIONS (3)
  - Encephalopathy [Recovered/Resolved]
  - Extrapyramidal disorder [Recovered/Resolved]
  - Therapy partial responder [Unknown]
